FAERS Safety Report 24166331 (Version 1)
Quarter: 2024Q3

REPORT INFORMATION
  Report Type: Spontaneous
  Country: IR (occurrence: IR)
  Receive Date: 20240802
  Receipt Date: 20240802
  Transmission Date: 20241017
  Serious: No
  Sender: ALKEM
  Company Number: IR-ALKEM LABORATORIES LIMITED-IR-ALKEM-2023-08517

PATIENT
  Sex: Female

DRUGS (1)
  1. LAMOTRIGINE [Suspect]
     Active Substance: LAMOTRIGINE
     Indication: Obsessive-compulsive disorder
     Dosage: 100 MILLIGRAM
     Route: 065

REACTIONS (1)
  - Rash erythematous [Recovered/Resolved]
